FAERS Safety Report 6362411-7 (Version None)
Quarter: 2009Q3

REPORT INFORMATION
  Report Type: 
  Country: None (occurrence: None)
  Receive Date: 20090918
  Receipt Date: 20090601
  Transmission Date: 20100115
  Serious: No
  Sender: FDA-Public Use
  Company Number: US-ABBOTT-09P-163-0575366-00

PATIENT
  Sex: Male
  Weight: 61.29 kg

DRUGS (2)
  1. HUMIRA [Suspect]
     Indication: CROHN'S DISEASE
     Dates: start: 20080901, end: 20090501
  2. HUMIRA [Suspect]
     Route: 058
     Dates: start: 20090501

REACTIONS (5)
  - CROHN'S DISEASE [None]
  - DRUG EFFECT DECREASED [None]
  - FOOD INTOLERANCE [None]
  - MALAISE [None]
  - NAUSEA [None]
